FAERS Safety Report 8616988-9 (Version None)
Quarter: 2012Q3

REPORT INFORMATION
  Report Type: 
  Country: None (occurrence: None)
  Receive Date: 20120823
  Receipt Date: 20120813
  Transmission Date: 20120928
  Serious: No
  Sender: FDA-Public Use
  Company Number: US-009507513-1208USA006561

PATIENT

DRUGS (3)
  1. PEGASYS [Suspect]
  2. RIBAVIRIN [Suspect]
  3. VICTRELIS [Suspect]
     Indication: HEPATITIS C
     Dosage: 4 DF, Q8H
     Route: 048
     Dates: start: 20120523

REACTIONS (2)
  - FATIGUE [None]
  - DYSGEUSIA [None]
